FAERS Safety Report 23217771 (Version 1)
Quarter: 2023Q4

REPORT INFORMATION
  Report Type: Spontaneous
  Country: JP (occurrence: JP)
  Receive Date: 20231122
  Receipt Date: 20231122
  Transmission Date: 20240110
  Serious: Yes (Other)
  Sender: FDA-Public Use
  Company Number: JP-HBP-2023JP030040

PATIENT
  Age: 34 Year
  Sex: Female

DRUGS (7)
  1. ALOXI [Suspect]
     Active Substance: PALONOSETRON HYDROCHLORIDE
     Indication: Supportive care
     Dosage: 0.75 MILLIGRAM, QD
     Route: 041
     Dates: start: 20230928
  2. FOSNETUPITANT CHLORIDE HYDROCHLORIDE [Suspect]
     Active Substance: FOSNETUPITANT CHLORIDE HYDROCHLORIDE
     Indication: Supportive care
     Dosage: 235 MILLIGRAM, QD
     Route: 041
     Dates: start: 20230928, end: 20230928
  3. DEXAMETHASONE SODIUM PHOSPHATE [Suspect]
     Active Substance: DEXAMETHASONE SODIUM PHOSPHATE
     Indication: Supportive care
     Dosage: 9.9 MILLIGRAM, QD
     Route: 041
     Dates: start: 20230928
  4. BELSOMRA [Concomitant]
     Active Substance: SUVOREXANT
     Indication: Product used for unknown indication
     Dosage: 15 MILLIGRAM, WHEN HAVING SLEEPLESSNESS
     Route: 048
  5. CELECOXIB [Concomitant]
     Active Substance: CELECOXIB
     Indication: Product used for unknown indication
     Dosage: 200 MILLIGRAM, WHEN HAVING PAIN
     Route: 048
  6. SODIUM CHLORIDE [Concomitant]
     Active Substance: SODIUM CHLORIDE
     Dosage: UNK, UNKNOWN
     Dates: start: 20230928
  7. APREPITANT [Concomitant]
     Active Substance: APREPITANT
     Dosage: UNK, UNKNOWN
     Route: 048
     Dates: start: 20230928

REACTIONS (4)
  - Dyspnoea [Recovered/Resolved]
  - Abdominal pain [Recovered/Resolved]
  - Nausea [Recovering/Resolving]
  - Photophobia [Recovering/Resolving]

NARRATIVE: CASE EVENT DATE: 20230928
